FAERS Safety Report 9054943 (Version 1)
Quarter: 2013Q1

REPORT INFORMATION
  Report Type: Spontaneous
  Country: CH (occurrence: CH)
  Receive Date: 20130208
  Receipt Date: 20130208
  Transmission Date: 20140127
  Serious: Yes (Other)
  Sender: FDA-Public Use
  Company Number: CH-ROCHE-1011791

PATIENT
  Sex: Female
  Weight: 47 kg

DRUGS (7)
  1. HERCEPTIN [Suspect]
     Indication: BREAST CANCER
     Route: 042
     Dates: start: 200803, end: 20080427
  2. HERCEPTIN [Suspect]
     Route: 042
     Dates: start: 200911
  3. BILOL [Concomitant]
     Route: 065
  4. MARCUMAR [Concomitant]
     Indication: CARDIAC VALVE DISEASE
     Route: 048
  5. CONCOR 5 [Concomitant]
     Indication: CARDIAC VALVE DISEASE
     Route: 048
  6. CHONDROSULF [Concomitant]
     Route: 065
  7. LOSARTAN [Concomitant]
     Indication: CARDIAC VALVE DISEASE
     Route: 048

REACTIONS (1)
  - Polyneuropathy [Not Recovered/Not Resolved]
